FAERS Safety Report 10969030 (Version 1)
Quarter: 2015Q1

REPORT INFORMATION
  Report Type: Spontaneous
  Country: US (occurrence: US)
  Receive Date: 20150331
  Receipt Date: 20150331
  Transmission Date: 20150721
  Serious: No
  Sender: FDA-Public Use
  Company Number: US-ASTRAZENECA-2013SE79302

PATIENT
  Age: 58 Year
  Sex: Female
  Weight: 114.7 kg

DRUGS (9)
  1. TELMISARTAN + HCTZ [Concomitant]
     Active Substance: HYDROCHLOROTHIAZIDE\TELMISARTAN
     Dosage: 1DF:80/25 UNIT NOS
  2. PREDNISONE. [Concomitant]
     Active Substance: PREDNISONE
  3. NEURONTIN [Concomitant]
     Active Substance: GABAPENTIN
  4. BYETTA [Suspect]
     Active Substance: EXENATIDE
     Indication: TYPE 2 DIABETES MELLITUS
     Dosage: 2.4 ML BID
     Route: 065
  5. TRADJENTA [Suspect]
     Active Substance: LINAGLIPTIN
  6. MICARDIS HCT [Concomitant]
     Active Substance: HYDROCHLOROTHIAZIDE\TELMISARTAN
  7. VITAMIN D [Concomitant]
     Active Substance: CHOLECALCIFEROL
  8. BYSTOLIC [Concomitant]
     Active Substance: NEBIVOLOL HYDROCHLORIDE
     Dosage: 1DF:10 UNIT NOS
  9. SYNTHROID [Concomitant]
     Active Substance: LEVOTHYROXINE SODIUM

REACTIONS (11)
  - Blood glucose increased [Unknown]
  - Nausea [Unknown]
  - Diarrhoea [Unknown]
  - Injection site pain [None]
  - Injection site pruritus [None]
  - Weight decreased [Unknown]
  - Rash generalised [None]
  - Blood glucose decreased [None]
  - Drug dose omission [Unknown]
  - Abdominal pain upper [None]
  - Headache [None]

NARRATIVE: CASE EVENT DATE: 2013
